FAERS Safety Report 24888574 (Version 1)
Quarter: 2025Q1

REPORT INFORMATION
  Report Type: Spontaneous
  Country: US (occurrence: None)
  Receive Date: 20250124
  Receipt Date: 20250124
  Transmission Date: 20250409
  Serious: Yes (Death)
  Sender: FDA-CTU
  Company Number: None

PATIENT
  Age: 52 Year
  Sex: Female

DRUGS (19)
  1. TALZENNA [Suspect]
     Active Substance: TALAZOPARIB TOSYLATE
  2. LETROZOLE [Concomitant]
     Active Substance: LETROZOLE
  3. MIRTAZAPINE [Concomitant]
     Active Substance: MIRTAZAPINE
  4. ONDANSETRON [Concomitant]
     Active Substance: ONDANSETRON
  5. PANTOPRAZOLE [Concomitant]
     Active Substance: PANTOPRAZOLE
  6. PROAIR HFA [Concomitant]
     Active Substance: ALBUTEROL SULFATE
  7. SENNA [Concomitant]
     Active Substance: SENNOSIDES
  8. TRAZODONE [Concomitant]
     Active Substance: TRAZODONE HYDROCHLORIDE
  9. TRULICITY [Concomitant]
     Indication: Breast cancer
     Dosage: FREQUENCY : DAILY;?
     Route: 048
  10. LORAZEPAM [Concomitant]
     Active Substance: LORAZEPAM
  11. ATORVASTATIN [Concomitant]
     Active Substance: ATORVASTATIN
  12. SUCRALFATE [Concomitant]
     Active Substance: SUCRALFATE
  13. CITALOPRAM [Concomitant]
     Active Substance: CITALOPRAM
  14. CYCLOBENZAPRINE [Concomitant]
     Active Substance: CYCLOBENZAPRINE
  15. DEXAMETHASONE [Concomitant]
     Active Substance: DEXAMETHASONE
  16. DOXAZOSIN [Concomitant]
     Active Substance: DOXAZOSIN MESYLATE
  17. GABAPENTIN [Concomitant]
     Active Substance: GABAPENTIN
  18. INSULIN ASPART [Concomitant]
     Active Substance: INSULIN ASPART
  19. INSULIN GLARGINE [Concomitant]
     Active Substance: INSULIN GLARGINE

REACTIONS (1)
  - Disease progression [None]

NARRATIVE: CASE EVENT DATE: 20250121
